FAERS Safety Report 5123684-1 (Version None)
Quarter: 2006Q4

REPORT INFORMATION
  Report Type: 
  Country: None (occurrence: None)
  Receive Date: 20061010
  Receipt Date: 20061004
  Transmission Date: 20070319
  Serious: Yes (Death)
  Sender: FDA-Public Use
  Company Number: 2006AP04612

PATIENT
  Age: 75 Year
  Sex: Female

DRUGS (1)
  1. MARCAIN SPINAL INJECTION [Suspect]
     Indication: SPINAL ANAESTHESIA
     Dosage: ISOBARIC 1 AMP (4 ML)
     Route: 037
     Dates: start: 20050401, end: 20050401

REACTIONS (2)
  - RESPIRATORY FAILURE [None]
  - SHOCK [None]
